FAERS Safety Report 24006711 (Version 1)
Quarter: 2024Q2

REPORT INFORMATION
  Report Type: Report from Study
  Country: AU (occurrence: AU)
  Receive Date: 20240624
  Receipt Date: 20240624
  Transmission Date: 20240716
  Serious: Yes (Death, Hospitalization)
  Sender: FDA-Public Use
  Company Number: AU-ELI_LILLY_AND_COMPANY-AU202311014125

PATIENT
  Age: 93 Year
  Sex: Female

DRUGS (8)
  1. FEMARA [Suspect]
     Active Substance: LETROZOLE
     Indication: Hormone receptor positive HER2 negative breast cancer
     Dosage: 2.5 MG, QD
     Route: 065
     Dates: start: 20190505, end: 20210505
  2. ABEMACICLIB [Suspect]
     Active Substance: ABEMACICLIB
     Indication: Hormone receptor positive HER2 negative breast cancer
     Dosage: 300 MG, QD
     Route: 048
     Dates: start: 20190506, end: 20190731
  3. ABEMACICLIB [Suspect]
     Active Substance: ABEMACICLIB
     Dosage: UNK
     Route: 048
     Dates: start: 20190828, end: 20200428
  4. ABEMACICLIB [Suspect]
     Active Substance: ABEMACICLIB
     Dosage: UNK
     Route: 048
     Dates: start: 20200506, end: 20210505
  5. GLUCOSAMINE SULFATE [Concomitant]
     Active Substance: GLUCOSAMINE SULFATE
     Indication: Osteopenia
     Dosage: UNK
     Route: 065
     Dates: start: 2017
  6. LETROZOLE [Concomitant]
     Active Substance: LETROZOLE
     Indication: Hormone receptor positive HER2 negative breast cancer
     Dosage: UNK
     Route: 048
     Dates: start: 20210506, end: 20231201
  7. PERINDOPRIL ARGININE [Concomitant]
     Active Substance: PERINDOPRIL ARGININE
     Indication: Hypertension
     Dosage: UNK
     Route: 065
     Dates: start: 2000
  8. DONEPEZIL [Concomitant]
     Active Substance: DONEPEZIL\DONEPEZIL HYDROCHLORIDE
     Indication: Memory impairment
     Dosage: UNK
     Route: 065

REACTIONS (2)
  - Dementia [Fatal]
  - Pneumonia [Recovered/Resolved]

NARRATIVE: CASE EVENT DATE: 20230714
